FAERS Safety Report 5358864-3 (Version None)
Quarter: 2007Q2

REPORT INFORMATION
  Report Type: 
  Country: None (occurrence: None)
  Receive Date: 20070601
  Receipt Date: 20070410
  Transmission Date: 20071010
  Serious: No
  Sender: FDA-Public Use
  Company Number: PHEH2007US05183

PATIENT
  Age: 87 Year
  Sex: Female

DRUGS (2)
  1. ENABLEX [Suspect]
     Indication: URINARY INCONTINENCE
     Dosage: SEE IMAGE
     Dates: start: 20070325
  2. ENABLEX [Suspect]
     Indication: URINARY INCONTINENCE
     Dosage: SEE IMAGE
     Dates: start: 20070410

REACTIONS (1)
  - DRUG INEFFECTIVE [None]
